FAERS Safety Report 4977053-5 (Version None)
Quarter: 2006Q1

REPORT INFORMATION
  Report Type: 
  Country: None (occurrence: None)
  Receive Date: 20060221
  Receipt Date: 20050606
  Transmission Date: 20060701
  Serious: Yes (Other)
  Sender: FDA-Public Use
  Company Number: PHEH2005US06339

PATIENT
  Age: 64 Year
  Sex: Female

DRUGS (2)
  1. DIOVAN [Suspect]
     Dosage: ORAL
     Route: 048
  2. LOTREL [Suspect]
     Dosage: ORAL
     Route: 048

REACTIONS (2)
  - CONDITION AGGRAVATED [None]
  - RENAL FAILURE [None]
